FAERS Safety Report 6717846-7 (Version None)
Quarter: 2010Q2

REPORT INFORMATION
  Report Type: 
  Country: None (occurrence: None)
  Receive Date: 20100510
  Receipt Date: 20100430
  Transmission Date: 20101027
  Serious: Yes (Disabling)
  Sender: FDA-Public Use
  Company Number: US-MERCK-1004USA01640

PATIENT
  Age: 71 Year
  Sex: Female

DRUGS (1)
  1. HYZAAR [Suspect]
     Indication: HYPERTENSION
     Route: 048
     Dates: start: 20091101, end: 20091201

REACTIONS (7)
  - BLOOD POTASSIUM DECREASED [None]
  - BURSITIS [None]
  - FALL [None]
  - GAIT DISTURBANCE [None]
  - MIGRAINE [None]
  - MUSCLE SPASMS [None]
  - PAIN IN EXTREMITY [None]
